FAERS Safety Report 4412898-1 (Version None)
Quarter: 2004Q3

REPORT INFORMATION
  Report Type: 
  Country: None (occurrence: None)
  Receive Date: 20040802
  Receipt Date: 20040621
  Transmission Date: 20050211
  Serious: Yes (Life-Threatening, Hospitalization)
  Sender: FDA-Public Use
  Company Number: IT-AMGEN-UK080795

PATIENT
  Sex: Male

DRUGS (13)
  1. DARBEPOETIN ALFA [Suspect]
     Indication: ANAEMIA OF MALIGNANT DISEASE
     Route: 058
     Dates: start: 20040601
  2. NEUPOGEN [Suspect]
     Route: 065
     Dates: start: 20040609, end: 20040618
  3. ADRIAMYCIN PFS [Suspect]
     Dates: start: 20040602
  4. ETOPOSIDE [Suspect]
     Dates: start: 20040602
  5. CYCLOPHOSPHAMIDE [Suspect]
     Dates: start: 20040602
  6. PROCARBAZINE [Suspect]
     Dates: start: 20040602
  7. PREDNISONE [Suspect]
     Dates: start: 20040602
  8. BLEOMYCIN [Suspect]
     Dates: start: 20040609
  9. SPORANOX [Concomitant]
     Route: 065
  10. INSULIN [Concomitant]
  11. ENALAPRIL MALEATE [Concomitant]
  12. OMEPRAZOLE [Concomitant]
  13. CIPROFLOXACIN [Concomitant]

REACTIONS (3)
  - LYMPHOMA [None]
  - MALIGNANT NEOPLASM PROGRESSION [None]
  - PULMONARY EMBOLISM [None]
